FAERS Safety Report 20254625 (Version 1)
Quarter: 2021Q4

REPORT INFORMATION
  Report Type: Spontaneous
  Country: JP (occurrence: JP)
  Receive Date: 20211230
  Receipt Date: 20211230
  Transmission Date: 20220303
  Serious: Yes (Life-Threatening, Hospitalization, Other)
  Sender: FDA-Public Use
  Company Number: JP-MLMSERVICE-20211214-3269114-1

PATIENT
  Age: 69 Year
  Sex: Male

DRUGS (1)
  1. GEMCITABINE [Suspect]
     Active Substance: GEMCITABINE
     Indication: Lung adenocarcinoma recurrent
     Dosage: 750 MG/M2; 1,000 MG/ BODY) SCHEDULED EVERY 2 WEEKS AS SALVAGE THERAPY
     Dates: start: 201908, end: 202005

REACTIONS (6)
  - Pericardial effusion [Unknown]
  - Pleural effusion [Unknown]
  - Hypertension [Unknown]
  - Intravascular haemolysis [Unknown]
  - Thrombotic microangiopathy [Unknown]
  - Renal impairment [Unknown]

NARRATIVE: CASE EVENT DATE: 20200501
